FAERS Safety Report 6998746-4 (Version None)
Quarter: 2010Q3

REPORT INFORMATION
  Report Type: 
  Country: None (occurrence: None)
  Receive Date: 20100920
  Receipt Date: 20100401
  Transmission Date: 20110219
  Serious: No
  Sender: FDA-Public Use
  Company Number: US-ASTRAZENECA-2010SE14587

PATIENT
  Sex: Female

DRUGS (3)
  1. SEROQUEL [Suspect]
     Indication: DEPRESSION
     Route: 048
     Dates: start: 20100328
  2. SEROQUEL [Suspect]
     Route: 048
     Dates: start: 20100328
  3. ATIVAN [Concomitant]

REACTIONS (3)
  - DIZZINESS POSTURAL [None]
  - FATIGUE [None]
  - INSOMNIA [None]
